FAERS Safety Report 25601760 (Version 2)
Quarter: 2025Q4

REPORT INFORMATION
  Report Type: Spontaneous
  Country: JP (occurrence: JP)
  Receive Date: 20250724
  Receipt Date: 20251103
  Transmission Date: 20260117
  Serious: No
  Sender: PFIZER
  Company Number: JP-GENMAB-2025-02073

PATIENT
  Sex: Female

DRUGS (1)
  1. TIVDAK [Suspect]
     Active Substance: TISOTUMAB VEDOTIN-TFTV
     Indication: Cervix carcinoma recurrent
     Dosage: UNK
     Route: 042
     Dates: start: 20250701

REACTIONS (3)
  - Infection [Recovered/Resolved]
  - Decreased appetite [Recovered/Resolved]
  - Pyrexia [Recovered/Resolved]

NARRATIVE: CASE EVENT DATE: 20250701
